FAERS Safety Report 7630186-7 (Version None)
Quarter: 2011Q3

REPORT INFORMATION
  Report Type: 
  Country: None (occurrence: None)
  Receive Date: 20110722
  Receipt Date: 20110708
  Transmission Date: 20111222
  Serious: Yes (Other)
  Sender: FDA-Public Use
  Company Number: PHHY2011DE61864

PATIENT
  Sex: Male
  Weight: 50 kg

DRUGS (1)
  1. EXFORGE HCT [Suspect]
     Indication: HYPERTENSION
     Dosage: 320 MG VALS, 10 MG AMLO AND 25 MG HCT, 1 TABLET DAILY
     Route: 048

REACTIONS (2)
  - HYPOTENSION [None]
  - CIRCULATORY COLLAPSE [None]
